FAERS Safety Report 13377572 (Version 2)
Quarter: 2017Q2

REPORT INFORMATION
  Report Type: Spontaneous
  Country: AR (occurrence: AR)
  Receive Date: 20170328
  Receipt Date: 20170613
  Transmission Date: 20170830
  Serious: Yes (Other)
  Sender: FDA-Public Use
  Company Number: AR-PFIZER INC-2017119511

PATIENT
  Age: 61 Year
  Sex: Male

DRUGS (2)
  1. SUTENT [Suspect]
     Active Substance: SUNITINIB MALATE
     Indication: METASTATIC RENAL CELL CARCINOMA
     Dosage: UNK, CYCLIC (4/2 SCHEME)
     Dates: start: 20110101
  2. SUTENT [Suspect]
     Active Substance: SUNITINIB MALATE
     Dosage: UNK, CYCLIC (2/1 SCHEME)

REACTIONS (11)
  - Memory impairment [Not Recovered/Not Resolved]
  - Malaise [Recovered/Resolved]
  - Hypersomnia [Recovered/Resolved]
  - Hypokinesia [Not Recovered/Not Resolved]
  - Mental impairment [Not Recovered/Not Resolved]
  - Cataract [Not Recovered/Not Resolved]
  - Hypophagia [Recovered/Resolved]
  - Noninfective encephalitis [Not Recovered/Not Resolved]
  - Visual impairment [Not Recovered/Not Resolved]
  - Neoplasm progression [Not Recovered/Not Resolved]
  - Vision blurred [Not Recovered/Not Resolved]

NARRATIVE: CASE EVENT DATE: 2011
